FAERS Safety Report 9627207 (Version 1)
Quarter: 2013Q4

REPORT INFORMATION
  Report Type: Spontaneous
  Country: BR (occurrence: BR)
  Receive Date: 20131010
  Receipt Date: 20131010
  Transmission Date: 20140711
  Serious: Yes (Other)
  Sender: FDA-Public Use
  Company Number: BR-PFIZER INC-2013287985

PATIENT
  Age: 55 Year
  Sex: Female
  Weight: 62 kg

DRUGS (4)
  1. LYRICA [Suspect]
     Indication: PAIN
     Dosage: 2 CAPSULES OF STRENGTH 75 MG (150 MG), DAILY
     Route: 048
     Dates: start: 20130902
  2. ATENOL [Concomitant]
     Indication: HYPERTENSION
     Dosage: 1 DAILY
     Dates: start: 2011
  3. VENLAFAXINE HYDROCHLORIDE [Concomitant]
     Indication: DEPRESSION
     Dosage: 75 MG, UNSPECIFIED FREQUENCY
     Dates: start: 2011
  4. RIVOTRIL [Concomitant]
     Indication: DEPRESSION
     Dosage: 2 MG, UNSPECIFIED FREQUENCY
     Dates: start: 2012

REACTIONS (2)
  - Spinal disorder [Unknown]
  - Drug ineffective [Not Recovered/Not Resolved]
